FAERS Safety Report 5185727-9 (Version None)
Quarter: 2006Q4

REPORT INFORMATION
  Report Type: 
  Country: None (occurrence: None)
  Receive Date: 20061220
  Receipt Date: 20060901
  Transmission Date: 20070319
  Serious: No
  Sender: FDA-Public Use
  Company Number: US-GLAXOSMITHKLINE-A0618877A

PATIENT
  Age: 51 Year
  Sex: Female

DRUGS (3)
  1. EQUATE NTS 21MG [Suspect]
  2. EQUATE NICOTINE GUM 2MG, MINT [Suspect]
  3. EQUATE NTS 14MG [Suspect]
     Dates: start: 20060828

REACTIONS (8)
  - ABDOMINAL DISCOMFORT [None]
  - ABDOMINAL DISTENSION [None]
  - ABDOMINAL PAIN [None]
  - APPLICATION SITE IRRITATION [None]
  - APPLICATION SITE PAPULES [None]
  - APPLICATION SITE PRURITUS [None]
  - INTENTIONAL DRUG MISUSE [None]
  - STOMACH DISCOMFORT [None]
